FAERS Safety Report 24934067 (Version 1)
Quarter: 2025Q1

REPORT INFORMATION
  Report Type: Report from Study
  Country: US (occurrence: US)
  Receive Date: 20250206
  Receipt Date: 20250206
  Transmission Date: 20250408
  Serious: Yes (Hospitalization, Other)
  Sender: EXELIXIS
  Company Number: US-EXELIXIS-CABO-24077629

PATIENT
  Age: 67 Year
  Sex: Male
  Weight: 90.703 kg

DRUGS (20)
  1. CABOMETYX [Suspect]
     Active Substance: CABOZANTINIB S-MALATE
     Indication: Renal cell carcinoma
     Dosage: 40 MG, QD
     Route: 048
     Dates: start: 20240220
  2. OPDIVO [Concomitant]
     Active Substance: NIVOLUMAB
  3. AMLODIPINE BESYLATE [Concomitant]
     Active Substance: AMLODIPINE BESYLATE
  4. CARVEDILOL [Concomitant]
     Active Substance: CARVEDILOL
  5. COMPAZINE [Concomitant]
     Active Substance: PROCHLORPERAZINE MALEATE
  6. FLUTICASONE PROPIONATE [Concomitant]
     Active Substance: FLUTICASONE PROPIONATE
  7. MOUNJARO [Concomitant]
     Active Substance: TIRZEPATIDE
  8. ONDANSETRON [Concomitant]
     Active Substance: ONDANSETRON
  9. PRILOSEC [Concomitant]
     Active Substance: OMEPRAZOLE MAGNESIUM
  10. REPATHA [Concomitant]
     Active Substance: EVOLOCUMAB
  11. TOUJEO MAX [Concomitant]
     Active Substance: INSULIN GLARGINE
  12. VITAMIN B12 [Concomitant]
     Active Substance: CYANOCOBALAMIN
  13. DEXCOM 67 RECEIVER [Concomitant]
  14. VITAMIN D3 [Concomitant]
     Active Substance: CHOLECALCIFEROL
  15. MONTELUKAST SODIUM [Concomitant]
     Active Substance: MONTELUKAST SODIUM
  16. LOSARTAN POTASSIUM [Concomitant]
     Active Substance: LOSARTAN POTASSIUM
  17. OMEPRAZOLE [Concomitant]
     Active Substance: OMEPRAZOLE
  18. VASCEPA [Concomitant]
     Active Substance: ICOSAPENT ETHYL
  19. ASPIRIN [Concomitant]
     Active Substance: ASPIRIN
  20. INSULIN NOS [Concomitant]
     Active Substance: INSULIN NOS

REACTIONS (6)
  - Weight decreased [Recovering/Resolving]
  - Loss of personal independence in daily activities [Recovering/Resolving]
  - Lung abscess [Recovered/Resolved]
  - Pneumonia bacterial [Recovering/Resolving]
  - Product physical issue [Unknown]
  - Product colour issue [Unknown]

NARRATIVE: CASE EVENT DATE: 20240506
